FAERS Safety Report 7867725-7 (Version None)
Quarter: 2011Q4

REPORT INFORMATION
  Report Type: 
  Country: None (occurrence: None)
  Receive Date: 20111028
  Receipt Date: 20111025
  Transmission Date: 20120403
  Serious: Yes (Other)
  Sender: FDA-Public Use
  Company Number: CHPA2011US14917

PATIENT
  Age: 69 Year
  Sex: Female

DRUGS (8)
  1. LEXAPRO [Concomitant]
  2. PERDIEM OVERNIGHT RELIEF PILLS [Suspect]
     Indication: CONSTIPATION
     Dosage: 2 DF, QD
     Route: 048
  3. NEXIUM [Concomitant]
  4. ALLEGRA [Concomitant]
  5. VITAMINS NOS [Concomitant]
  6. SYNTHROID [Concomitant]
  7. CRESTOR [Concomitant]
  8. AUREOMYCIN                              /GFR/ [Concomitant]

REACTIONS (3)
  - DRUG DEPENDENCE [None]
  - DISEASE RECURRENCE [None]
  - INCORRECT DRUG ADMINISTRATION DURATION [None]
